FAERS Safety Report 12726823 (Version 2)
Quarter: 2016Q4

REPORT INFORMATION
  Report Type: Spontaneous
  Country: US (occurrence: US)
  Receive Date: 20160908
  Receipt Date: 20161101
  Transmission Date: 20170207
  Serious: Yes (Other)
  Sender: FDA-Public Use
  Company Number: US-ASTRAZENECA-2016SE93917

PATIENT
  Age: 75 Year
  Sex: Female
  Weight: 90.3 kg

DRUGS (5)
  1. BLOOD PRESSURE MEDICATION [Suspect]
     Active Substance: UNSPECIFIED INGREDIENT
     Dosage: AT NIGHT
     Route: 065
  2. LANTUS [Concomitant]
     Active Substance: INSULIN GLARGINE
     Indication: TYPE 2 DIABETES MELLITUS
     Dosage: 22 UNITS, 32 AT NIGHT
     Route: 058
     Dates: start: 2012
  3. BYDUREON [Suspect]
     Active Substance: EXENATIDE
     Indication: TYPE 2 DIABETES MELLITUS
     Route: 058
     Dates: start: 201402
  4. ANOTHER MEDICATION [Concomitant]
     Active Substance: UNSPECIFIED INGREDIENT
     Dosage: TWICE DAILY FOR ALONG WITH HER INSULIN
  5. LOT OF MEDICATION [Concomitant]

REACTIONS (7)
  - Incorrect dose administered [Unknown]
  - Altered visual depth perception [Not Recovered/Not Resolved]
  - Physical product label issue [Unknown]
  - Cerebrovascular accident [Unknown]
  - Blood pressure decreased [Unknown]
  - Visual field defect [Unknown]
  - Optic nerve injury [Unknown]

NARRATIVE: CASE EVENT DATE: 2015
